FAERS Safety Report 20405369 (Version 9)
Quarter: 2023Q2

REPORT INFORMATION
  Report Type: Spontaneous
  Country: IN (occurrence: IN)
  Receive Date: 20220131
  Receipt Date: 20230615
  Transmission Date: 20230722
  Serious: Yes (Hospitalization, Other)
  Sender: FDA-Public Use
  Company Number: IN-PFIZER INC-2020412633

PATIENT
  Age: 60 Year
  Sex: Female
  Weight: 72 kg

DRUGS (6)
  1. PALBOCICLIB [Suspect]
     Active Substance: PALBOCICLIB
     Indication: Breast cancer metastatic
     Dosage: ONCE A DAY FOR 21 DAYS
     Route: 048
     Dates: start: 20190810
  2. LETROZOLE [Concomitant]
     Active Substance: LETROZOLE
     Indication: Breast cancer metastatic
     Dosage: 2.5 MG, 1X/DAY
     Dates: start: 201908
  3. GEMCAL [CALCITRIOL;CALCIUM CITRATE] [Concomitant]
     Dosage: UNK, 1X/DAY
  4. FEBUXOSTAT [Concomitant]
     Active Substance: FEBUXOSTAT
     Dosage: 40 MG, 1X/DAY
  5. SHELCAL-OS [Concomitant]
     Dosage: 1X/DAY
  6. CALCIROL [COLECALCIFEROL] [Concomitant]
     Dosage: 60K ONCE A MONTH

REACTIONS (10)
  - COVID-19 [Unknown]
  - Renal impairment [Not Recovered/Not Resolved]
  - Haemoglobin decreased [Not Recovered/Not Resolved]
  - Mean cell volume increased [Unknown]
  - Blood creatine increased [Unknown]
  - Full blood count abnormal [Unknown]
  - Liver function test abnormal [Not Recovered/Not Resolved]
  - Breast pain [Unknown]
  - Neoplasm progression [Unknown]
  - Blood uric acid increased [Unknown]

NARRATIVE: CASE EVENT DATE: 20201020
